FAERS Safety Report 9368816 (Version 3)
Quarter: 2013Q3

REPORT INFORMATION
  Report Type: Spontaneous
  Country: US (occurrence: US)
  Receive Date: 20130626
  Receipt Date: 20130822
  Transmission Date: 20140515
  Serious: Yes (Hospitalization, Other)
  Sender: FDA-Public Use
  Company Number: US-B.I. PHARMACEUTICALS,INC./RIDGEFIELD-2013-BI-17785BP

PATIENT
  Age: 57 Year
  Sex: Female

DRUGS (15)
  1. COMBIVENT [Suspect]
     Indication: PRODUCT USED FOR UNKNOWN INDICATION
     Dosage: DAILY DOSE: 18 MCG / 103 MCG
     Route: 055
     Dates: start: 201104
  2. FLOVENT INHALER [Concomitant]
     Route: 055
  3. LORAZEPAM [Concomitant]
     Route: 048
  4. LOSARTAN [Concomitant]
     Route: 048
  5. METOCLOPRAMIDE [Concomitant]
     Route: 048
  6. PROTONIX [Concomitant]
     Route: 048
  7. SEREVENT DISKUS [Concomitant]
     Route: 055
  8. SIMVASTATIN [Concomitant]
     Route: 048
  9. SINGULAIR [Concomitant]
  10. PLAVIX [Concomitant]
     Route: 048
     Dates: end: 20130527
  11. VITAMIN D [Concomitant]
  12. PERCOCET [Concomitant]
     Route: 048
  13. OXYCODONE [Concomitant]
  14. TYLENOL [Concomitant]
  15. ROPINIROLE [Concomitant]

REACTIONS (2)
  - Cerebrovascular accident [Unknown]
  - Off label use [Not Recovered/Not Resolved]
